FAERS Safety Report 17802456 (Version 1)
Quarter: 2020Q2

REPORT INFORMATION
  Report Type: Report from Study
  Country: CO (occurrence: CO)
  Receive Date: 20200519
  Receipt Date: 20200519
  Transmission Date: 20200714
  Serious: Yes (Hospitalization)
  Sender: FDA-Public Use
  Company Number: CO-RECORDATI RARE DISEASES-2083947

PATIENT
  Age: 53 Year
  Sex: Female
  Weight: 80 kg

DRUGS (9)
  1. SPIRONOLACTONE. [Concomitant]
     Active Substance: SPIRONOLACTONE
     Dates: start: 20160602
  2. SIGNIFOR LAR [Suspect]
     Active Substance: PASIREOTIDE PAMOATE
     Indication: ACROMEGALY
     Route: 058
     Dates: start: 20160526, end: 20170330
  3. LEVOTIROXIN [Concomitant]
     Active Substance: LEVOTHYROXINE SODIUM
     Dates: start: 20160507
  4. ESOMEPRAZOL [Concomitant]
     Active Substance: ESOMEPRAZOLE
     Dates: start: 2012
  5. CLONAZEPAM. [Concomitant]
     Active Substance: CLONAZEPAM
     Dates: start: 20160707
  6. BISACODYL. [Concomitant]
     Active Substance: BISACODYL
     Dates: start: 20170116
  7. METOPROLOL. [Concomitant]
     Active Substance: METOPROLOL
     Dates: start: 2009
  8. SIGNIFOR LAR [Suspect]
     Active Substance: PASIREOTIDE PAMOATE
     Route: 058
     Dates: start: 20170502
  9. SITAGLIPTINE [Concomitant]
     Active Substance: SITAGLIPTIN
     Dates: start: 20170302

REACTIONS (2)
  - Abdominal pain [Recovered/Resolved]
  - Adrenal insufficiency [Recovered/Resolved]

NARRATIVE: CASE EVENT DATE: 20170415
